FAERS Safety Report 12499240 (Version 3)
Quarter: 2016Q3

REPORT INFORMATION
  Report Type: Spontaneous
  Country: RU (occurrence: RU)
  Receive Date: 20160627
  Receipt Date: 20160712
  Transmission Date: 20161109
  Serious: Yes (Death, Hospitalization)
  Sender: FDA-Public Use
  Company Number: PHHY2016RU087246

PATIENT
  Age: 6 Year
  Weight: 24 kg

DRUGS (1)
  1. EXJADE [Suspect]
     Active Substance: DEFERASIROX
     Indication: APLASTIC ANAEMIA
     Dosage: 750 MG (30 MG/KG), QD
     Route: 048
     Dates: start: 2013

REACTIONS (6)
  - Iron overload [Fatal]
  - Therapy non-responder [Unknown]
  - Disease progression [Recovering/Resolving]
  - Aplastic anaemia [Recovering/Resolving]
  - Diarrhoea [Recovering/Resolving]
  - Vomiting [Recovering/Resolving]

NARRATIVE: CASE EVENT DATE: 20160520
